FAERS Safety Report 24405443 (Version 1)
Quarter: 2024Q4

REPORT INFORMATION
  Report Type: Spontaneous
  Country: CN (occurrence: CN)
  Receive Date: 20241007
  Receipt Date: 20241007
  Transmission Date: 20250114
  Serious: Yes (Hospitalization, Other)
  Sender: BAXTER
  Company Number: None

PATIENT
  Age: 35 Year
  Sex: Male
  Weight: 57 kg

DRUGS (14)
  1. CYCLOPHOSPHAMIDE [Suspect]
     Active Substance: CYCLOPHOSPHAMIDE
     Indication: Lymphoma
     Dosage: 1.8 G, ONE TIME IN ONE DAY, DILUTED WITH 100 ML OF 0.9% SODIUM CHLORIDE, AS A PART OF R-DA-EPOCH REG
     Route: 041
     Dates: start: 20240803, end: 20240803
  2. CYCLOPHOSPHAMIDE [Suspect]
     Active Substance: CYCLOPHOSPHAMIDE
     Indication: Diffuse large B-cell lymphoma
  3. SODIUM CHLORIDE [Suspect]
     Active Substance: SODIUM CHLORIDE
     Indication: Medication dilution
     Dosage: (0.9%) 250 ML, ONE TIME IN ONE DAY, USED TO DILUTE 0.11 G OF ETOPOSIDE, D1-D3 (ROUTE: WITHIN THE PUM
     Route: 050
     Dates: start: 20240730, end: 20240802
  4. SODIUM CHLORIDE [Suspect]
     Active Substance: SODIUM CHLORIDE
     Dosage: (0.9%) 100 ML, ONE TIME IN ONE DAY, USED TO DILUTE 1.8 G OF CYCLOPHOSPHAMIDE (DOSAGE FORM: INJECTION
     Route: 041
     Dates: start: 20240803, end: 20240803
  5. SODIUM CHLORIDE [Suspect]
     Active Substance: SODIUM CHLORIDE
     Dosage: 0.9%) 100 ML, ONE TIME IN ONE DAY, USED TO DILUTE 0.5 MG OF VINCRISTINE SULFATE, D1 (ROUTE: WITHIN T
     Route: 050
     Dates: start: 20240730, end: 20240730
  6. DEXTROSE [Suspect]
     Active Substance: DEXTROSE MONOHYDRATE
     Indication: Medication dilution
     Dosage: (5%) 250 ML, ONE TIME IN ONE DAY, USED TO DILUTE 50 MG OF DOXORUBICIN HYDROCHLORIDE (DOSAGE FORM: IN
     Route: 041
     Dates: start: 20240730, end: 20240730
  7. ETOPOSIDE [Suspect]
     Active Substance: ETOPOSIDE
     Indication: Lymphoma
     Dosage: 0.11 G, ONE TIME IN ONE DAY, DILUTED WITH 250 ML OF 0.9% SODIUM CHLORIDE, D1-D3 (ROUTE: WITHIN THE P
     Route: 050
     Dates: start: 20240730, end: 20240802
  8. ETOPOSIDE [Suspect]
     Active Substance: ETOPOSIDE
     Indication: Diffuse large B-cell lymphoma
  9. DOXORUBICIN HYDROCHLORIDE [Suspect]
     Active Substance: DOXORUBICIN HYDROCHLORIDE
     Indication: Lymphoma
     Dosage: 50 MG, ONE TIME IN ONE DAY, DILUTED WITH 250 ML OF 5% GLUCOSE, AS A PART OF R-DA-EPOCH REGIMEN
     Route: 041
     Dates: start: 20240730, end: 20240730
  10. DOXORUBICIN HYDROCHLORIDE [Suspect]
     Active Substance: DOXORUBICIN HYDROCHLORIDE
     Indication: Diffuse large B-cell lymphoma
  11. VINCRISTINE SULFATE [Suspect]
     Active Substance: VINCRISTINE SULFATE
     Indication: Lymphoma
     Dosage: 0.5 MG, ONE TIME IN ONE DAY, DILUTED WITH 100 ML OF 0.9% SODIUM CHLORIDE, D1 (ROUTE: WITHIN THE PUMP
     Route: 050
     Dates: start: 20240730, end: 20240802
  12. VINCRISTINE SULFATE [Suspect]
     Active Substance: VINCRISTINE SULFATE
     Indication: Diffuse large B-cell lymphoma
  13. PREDNISONE [Suspect]
     Active Substance: PREDNISONE
     Indication: Diffuse large B-cell lymphoma
     Dosage: UNK, AS A PART OF R-DA-EPOCH REGIMEN
     Route: 065
  14. RITUXIMAB [Suspect]
     Active Substance: RITUXIMAB
     Indication: Diffuse large B-cell lymphoma
     Dosage: UNK, AS A PART OF R-DA-EPOCH REGIMEN
     Route: 065

REACTIONS (1)
  - Myelosuppression [Recovering/Resolving]

NARRATIVE: CASE EVENT DATE: 20240812
